FAERS Safety Report 5508616-6 (Version None)
Quarter: 2007Q4

REPORT INFORMATION
  Report Type: 
  Country: None (occurrence: None)
  Receive Date: 20071107
  Receipt Date: 20071025
  Transmission Date: 20080405
  Serious: Yes (Hospitalization)
  Sender: FDA-Public Use
  Company Number: JP-BRISTOL-MYERS SQUIBB COMPANY-13965314

PATIENT
  Age: 65 Year
  Sex: Male

DRUGS (2)
  1. MITOMYCIN-C [Suspect]
     Indication: HEPATIC CANCER METASTATIC
     Route: 013
  2. FARMORUBICIN [Suspect]
     Indication: HEPATIC CANCER METASTATIC
     Route: 013

REACTIONS (1)
  - HEPATIC NECROSIS [None]
